FAERS Safety Report 18530105 (Version 2)
Quarter: 2024Q2

REPORT INFORMATION
  Report Type: Report from Study
  Country: BR (occurrence: BR)
  Receive Date: 20201120
  Receipt Date: 20240404
  Transmission Date: 20240716
  Serious: Yes (Other)
  Sender: FDA-Public Use
  Company Number: BR-TAKEDA-BR202010980

PATIENT
  Age: 24 Year
  Sex: Male
  Weight: 60 kg

DRUGS (6)
  1. HEMO-8R [Suspect]
     Active Substance: ANTIHEMOPHILIC FACTOR, HUMAN RECOMBINANT
     Indication: Factor VIII deficiency
     Dosage: 1250 INTERNATIONAL UNIT, QOD
     Route: 042
     Dates: start: 20170719
  2. HEMO-8R [Suspect]
     Active Substance: ANTIHEMOPHILIC FACTOR, HUMAN RECOMBINANT
     Dosage: 1250 INTERNATIONAL UNIT, QOD
     Route: 042
     Dates: start: 20200315
  3. HEMO-8R [Suspect]
     Active Substance: ANTIHEMOPHILIC FACTOR, HUMAN RECOMBINANT
     Dosage: UNK
     Route: 065
     Dates: start: 20200501
  4. HEMO-8R [Suspect]
     Active Substance: ANTIHEMOPHILIC FACTOR, HUMAN RECOMBINANT
     Dosage: 1250 INTERNATIONAL UNIT
     Route: 042
  5. HEMO-8R [Suspect]
     Active Substance: ANTIHEMOPHILIC FACTOR, HUMAN RECOMBINANT
     Dosage: 1250 INTERNATIONAL UNIT
     Route: 042
  6. HEMO-8R [Suspect]
     Active Substance: ANTIHEMOPHILIC FACTOR, HUMAN RECOMBINANT
     Dosage: 1500 INTERNATIONAL UNIT, Q3WEEKS
     Route: 042

REACTIONS (14)
  - Haemorrhage [Recovering/Resolving]
  - Panic attack [Not Recovered/Not Resolved]
  - Disease progression [Not Recovered/Not Resolved]
  - Hypoaesthesia [Not Recovered/Not Resolved]
  - Drug hypersensitivity [Not Recovered/Not Resolved]
  - Pain in extremity [Unknown]
  - Underweight [Unknown]
  - Nausea [Not Recovered/Not Resolved]
  - Malaise [Unknown]
  - Headache [Recovering/Resolving]
  - Limb discomfort [Recovered/Resolved]
  - Gastritis [Not Recovered/Not Resolved]
  - Inappropriate schedule of product administration [Not Recovered/Not Resolved]
  - Product availability issue [Unknown]

NARRATIVE: CASE EVENT DATE: 20200802
